FAERS Safety Report 7885386-8 (Version None)
Quarter: 2011Q4

REPORT INFORMATION
  Report Type: 
  Country: None (occurrence: None)
  Receive Date: 20111102
  Receipt Date: 20111024
  Transmission Date: 20120403
  Serious: Yes (Other)
  Sender: FDA-Public Use
  Company Number: US-ASTRAZENECA-2010SE02104

PATIENT
  Age: 64 Year
  Sex: Female

DRUGS (3)
  1. ZOMIG [Suspect]
     Indication: MIGRAINE
     Route: 048
  2. ZOMIG [Suspect]
     Route: 048
  3. OTHER MEDICATIONS [Concomitant]

REACTIONS (8)
  - THYROID DISORDER [None]
  - ANIMAL BITE [None]
  - SUICIDAL IDEATION [None]
  - HYPOTENSION [None]
  - HEAD INJURY [None]
  - EYE SWELLING [None]
  - FALL [None]
  - DRUG DOSE OMISSION [None]
